FAERS Safety Report 16342454 (Version 1)
Quarter: 2019Q2

REPORT INFORMATION
  Report Type: Report from Study
  Country: AU (occurrence: AU)
  Receive Date: 20190522
  Receipt Date: 20190522
  Transmission Date: 20190711
  Serious: Yes (Death, Life-Threatening)
  Sender: FDA-Public Use
  Company Number: AU-ROCHE-2321177

PATIENT
  Age: 54 Year
  Sex: Female

DRUGS (4)
  1. OXALIPLATIN. [Suspect]
     Active Substance: OXALIPLATIN
     Indication: COLORECTAL CANCER METASTATIC
     Dosage: DATE OF MOST RECENT DOSE OF OXALIPLATIN PRIOR TO EVENT ONSET: 05/JUL/2018
     Route: 065
     Dates: start: 20180620
  2. FOLINIC ACID [Suspect]
     Active Substance: LEUCOVORIN
     Indication: COLORECTAL CANCER METASTATIC
     Dosage: DATE OF MOST RECENT DOSE OF FOLINIC ACID PRIOR TO EVENT ONSET: 05/JUL/2018
     Route: 065
     Dates: start: 20180620
  3. FLUOROURACIL. [Suspect]
     Active Substance: FLUOROURACIL
     Indication: COLORECTAL CANCER METASTATIC
     Dosage: DATE OF MOST RECENT DOSE OF FLUOROURACIL PRIOR TO EVENT ONSET: 05/JUL/2018
     Route: 065
     Dates: start: 20180620
  4. BEVACIZUMAB. [Suspect]
     Active Substance: BEVACIZUMAB
     Indication: COLORECTAL CANCER METASTATIC
     Dosage: DATE OF MOST RECENT DOSE OF BEVACIZUMAB PRIOR TO EVENT ONSET: 05/JUL/2018
     Route: 065
     Dates: start: 20180403

REACTIONS (2)
  - Death [Fatal]
  - Cerebrovascular accident [Not Recovered/Not Resolved]

NARRATIVE: CASE EVENT DATE: 20180705
